FAERS Safety Report 17036395 (Version 2)
Quarter: 2019Q4

REPORT INFORMATION
  Report Type: Spontaneous
  Country: US (occurrence: US)
  Receive Date: 20191115
  Receipt Date: 20191127
  Transmission Date: 20200122
  Serious: No
  Sender: FDA-Public Use
  Company Number: US-BEH-2019109524

PATIENT
  Age: 39 Year
  Sex: Female
  Weight: 74.83 kg

DRUGS (2)
  1. HAEGARDA [Suspect]
     Active Substance: HUMAN C1-ESTERASE INHIBITOR
     Indication: HEREDITARY ANGIOEDEMA
     Dosage: 7500 INTERNATIONAL UNIT, BIW
     Route: 065
     Dates: start: 201812
  2. HAEGARDA [Suspect]
     Active Substance: HUMAN C1-ESTERASE INHIBITOR
     Indication: PROPHYLAXIS
     Dosage: 5000 INTERNATIONAL UNIT, BIW
     Route: 065
     Dates: end: 2019

REACTIONS (3)
  - Dizziness [Unknown]
  - Weight decreased [Recovered/Resolved]
  - Palpitations [Recovered/Resolved]

NARRATIVE: CASE EVENT DATE: 201812
